FAERS Safety Report 8604967-7 (Version None)
Quarter: 2012Q3

REPORT INFORMATION
  Report Type: 
  Country: None (occurrence: None)
  Receive Date: 20120820
  Receipt Date: 20120816
  Transmission Date: 20120928
  Serious: Yes (Other)
  Sender: FDA-Public Use
  Company Number: US-PFIZER INC-2012201450

PATIENT
  Sex: Female
  Weight: 81.633 kg

DRUGS (3)
  1. PREMARIN [Concomitant]
     Dosage: UNK
  2. INDERAL [Suspect]
     Indication: HEADACHE
  3. INDERAL [Suspect]
     Indication: HYPERTENSION
     Dosage: 20 MG, 3X/DAY
     Route: 048
     Dates: end: 20070101

REACTIONS (4)
  - HEART RATE NORMAL [None]
  - EMOTIONAL DISORDER [None]
  - THERAPEUTIC RESPONSE UNEXPECTED [None]
  - AUTOIMMUNE THYROIDITIS [None]
